FAERS Safety Report 16569456 (Version 2)
Quarter: 2019Q3

REPORT INFORMATION
  Report Type: Spontaneous
  Country: AU (occurrence: AU)
  Receive Date: 20190715
  Receipt Date: 20190814
  Transmission Date: 20191004
  Serious: Yes (Other)
  Sender: FDA-Public Use
  Company Number: AU-ROCHE-2354084

PATIENT
  Sex: Female
  Weight: 98 kg

DRUGS (2)
  1. RITUXIMAB. [Suspect]
     Active Substance: RITUXIMAB
     Indication: EVANS SYNDROME
     Route: 065
     Dates: start: 20190617
  2. PREDNISONE. [Concomitant]
     Active Substance: PREDNISONE
     Indication: EVANS SYNDROME
     Route: 065

REACTIONS (4)
  - Off label use [Unknown]
  - Thrombosis [Unknown]
  - Intentional product use issue [Unknown]
  - Pulmonary embolism [Unknown]
